FAERS Safety Report 9474121 (Version 1)
Quarter: 2013Q3

REPORT INFORMATION
  Report Type: Report from Study
  Country: US (occurrence: US)
  Receive Date: 20130823
  Receipt Date: 20130823
  Transmission Date: 20140515
  Serious: Yes (Death)
  Sender: FDA-Public Use
  Company Number: PHEH2013US017786

PATIENT
  Age: 80 Year
  Sex: Female
  Weight: 47 kg

DRUGS (1)
  1. EXJADE [Suspect]
     Indication: IRON OVERLOAD
     Dosage: 125 MG, QD
     Route: 048
     Dates: start: 20130719, end: 20130724

REACTIONS (1)
  - Death [Fatal]
